FAERS Safety Report 8496681-6 (Version None)
Quarter: 2012Q3

REPORT INFORMATION
  Report Type: 
  Country: None (occurrence: None)
  Receive Date: 20120709
  Receipt Date: 20120626
  Transmission Date: 20120928
  Serious: No
  Sender: FDA-Public Use
  Company Number: US-ASTRAZENECA-2012SE40542

PATIENT
  Age: 64 Year
  Sex: Male

DRUGS (2)
  1. SYMBICORT [Suspect]
     Route: 055
  2. ALBUTEROL [Concomitant]

REACTIONS (4)
  - ASTHMA [None]
  - DYSPNOEA [None]
  - DRUG DOSE OMISSION [None]
  - CHRONIC OBSTRUCTIVE PULMONARY DISEASE [None]
